FAERS Safety Report 18967562 (Version 1)
Quarter: 2021Q1

REPORT INFORMATION
  Report Type: Spontaneous
  Country: US (occurrence: US)
  Receive Date: 20210304
  Receipt Date: 20210304
  Transmission Date: 20210420
  Serious: No
  Sender: FDA-Public Use
  Company Number: US-ELI_LILLY_AND_COMPANY-US202103002140

PATIENT
  Sex: Female

DRUGS (2)
  1. EMGALITY [Suspect]
     Active Substance: GALCANEZUMAB-GNLM
     Indication: DIZZINESS
  2. EMGALITY [Suspect]
     Active Substance: GALCANEZUMAB-GNLM
     Indication: NERVOUS SYSTEM DISORDER
     Dosage: 120 MG, UNKNOWN
     Route: 065
     Dates: start: 20210302

REACTIONS (2)
  - Underdose [Unknown]
  - Off label use [Unknown]
